FAERS Safety Report 11267329 (Version 2)
Quarter: 2015Q3

REPORT INFORMATION
  Report Type: Report from Study
  Country: MX (occurrence: MX)
  Receive Date: 20150713
  Receipt Date: 20150817
  Transmission Date: 20151125
  Serious: Yes (Hospitalization, Other)
  Sender: FDA-Public Use
  Company Number: PHHY2015MX084066

PATIENT
  Age: 46 Year
  Sex: Female

DRUGS (1)
  1. TASIGNA [Suspect]
     Active Substance: NILOTINIB
     Indication: CHRONIC MYELOID LEUKAEMIA
     Dosage: 800 MG, QD
     Route: 065
     Dates: start: 20150508

REACTIONS (7)
  - Menorrhagia [Recovering/Resolving]
  - Headache [Unknown]
  - Thrombocytopenia [Recovering/Resolving]
  - Polymenorrhoea [Recovering/Resolving]
  - Endometrial hypertrophy [Recovering/Resolving]
  - Haematoma [Recovered/Resolved]
  - Petechiae [Not Recovered/Not Resolved]
